FAERS Safety Report 7972824-5 (Version None)
Quarter: 2011Q4

REPORT INFORMATION
  Report Type: 
  Country: None (occurrence: None)
  Receive Date: 20111213
  Receipt Date: 20111129
  Transmission Date: 20120403
  Serious: Yes (Hospitalization)
  Sender: FDA-Public Use
  Company Number: US-ROCHE-1019985

PATIENT
  Sex: Male

DRUGS (1)
  1. ALTEPLASE [Suspect]
     Indication: PULMONARY EMBOLISM
     Route: 042

REACTIONS (1)
  - HAEMATOMA [None]
